FAERS Safety Report 17195373 (Version 9)
Quarter: 2020Q4

REPORT INFORMATION
  Report Type: Report from Study
  Country: FR (occurrence: FR)
  Receive Date: 20191224
  Receipt Date: 20201229
  Transmission Date: 20210113
  Serious: Yes (Hospitalization)
  Sender: FDA-Public Use
  Company Number: FR-ROCHE-2495841

PATIENT
  Age: 53 Year
  Sex: Male
  Weight: 89 kg

DRUGS (21)
  1. VALACICLOVIR [Concomitant]
     Active Substance: VALACYCLOVIR HYDROCHLORIDE
     Route: 048
     Dates: start: 20170102
  2. OMEPRAZOL [Concomitant]
     Active Substance: OMEPRAZOLE
     Indication: GASTROOESOPHAGEAL REFLUX DISEASE
     Route: 048
     Dates: start: 20191206, end: 20200115
  3. DIAZEPAM. [Concomitant]
     Active Substance: DIAZEPAM
     Indication: ANXIETY
     Route: 048
     Dates: start: 20200115
  4. ZARZIO [Concomitant]
     Active Substance: FILGRASTIM
     Indication: NEUTROPENIA
     Dates: start: 20190619
  5. SMECTA [Concomitant]
     Active Substance: MONTMORILLONITE
     Route: 048
     Dates: start: 20181114
  6. ROCEPHINE [Concomitant]
     Active Substance: CEFTRIAXONE SODIUM
     Indication: PROSTATE INFECTION
     Dates: start: 20190529, end: 201906
  7. ZARZIO [Concomitant]
     Active Substance: FILGRASTIM
     Route: 058
     Dates: start: 20191106
  8. METEOSPASMYL [Concomitant]
     Indication: DIARRHOEA
     Route: 048
     Dates: start: 20190925
  9. FOLIC ACID. [Concomitant]
     Active Substance: FOLIC ACID
     Indication: FOLATE DEFICIENCY
     Route: 048
     Dates: start: 20191224, end: 20200115
  10. VENETOCLAX. [Suspect]
     Active Substance: VENETOCLAX
     Indication: PLASMA CELL MYELOMA
     Dosage: ON DAYS 1-28 OF EACH 28-DAY CYCLE?MOST RECENT DOSE OF VENETOCLAX (600 MG) PRIOR TO SAE AND AE ONSET
     Route: 048
     Dates: start: 20181114
  11. ATEZOLIZUMAB. [Suspect]
     Active Substance: ATEZOLIZUMAB
     Indication: PLASMA CELL MYELOMA
     Dosage: ON DAY 1 AND DAY 15 OF EACH 28-DAY CYCLE.?ON 20/NOV/2019, HE RECEIVED LAST DOSE OF ATEZOLIZUMAB (840
     Route: 041
  12. ATOVAQUONE. [Concomitant]
     Active Substance: ATOVAQUONE
     Route: 048
     Dates: start: 20170102
  13. ERYTHROMYCINE [Concomitant]
     Active Substance: ERYTHROMYCIN
     Indication: DERMATITIS ACNEIFORM
     Route: 061
     Dates: start: 20190116, end: 20191106
  14. CIFLOX (FRANCE) [Concomitant]
     Active Substance: CIPROFLOXACIN
     Indication: PROSTATE INFECTION
     Route: 048
  15. IMODIUM [Concomitant]
     Active Substance: LOPERAMIDE HYDROCHLORIDE
     Indication: DIARRHOEA
     Route: 048
     Dates: start: 201906
  16. RACECADOTRIL [Concomitant]
     Active Substance: RACECADOTRIL
     Indication: DIARRHOEA
     Route: 048
     Dates: start: 20181115, end: 20191106
  17. ZARZIO [Concomitant]
     Active Substance: FILGRASTIM
     Route: 058
     Dates: start: 20190716
  18. INFLUENZA VACCINE [Concomitant]
     Active Substance: INFLUENZA VIRUS VACCINE
     Route: 030
     Dates: start: 201911, end: 201911
  19. FUNGIZONE [Concomitant]
     Active Substance: AMPHOTERICIN B
     Dosage: 1 OTHER
     Route: 061
     Dates: start: 20191224, end: 20200115
  20. COBIMETINIB. [Suspect]
     Active Substance: COBIMETINIB
     Indication: PLASMA CELL MYELOMA
     Dosage: ON DAYS 1-21 OF EACH 28-DAY?MOST RECENT DOSE OF COBIMETINIB PRIOR TO SAE ONSET WAS GIVEN ON 06/DEC/2
     Route: 048
     Dates: start: 20181114
  21. METOCLOPRAMIDE. [Concomitant]
     Active Substance: METOCLOPRAMIDE
     Indication: NAUSEA
     Dates: start: 20181114, end: 20191106

REACTIONS (2)
  - Hyperthyroidism [Recovered/Resolved]
  - Intervertebral discitis [Recovered/Resolved]

NARRATIVE: CASE EVENT DATE: 20191023
